FAERS Safety Report 5603118-0 (Version None)
Quarter: 2008Q1

REPORT INFORMATION
  Report Type: 
  Country: None (occurrence: None)
  Receive Date: 20080125
  Receipt Date: 20080113
  Transmission Date: 20080703
  Serious: Yes (Other)
  Sender: FDA-Public Use
  Company Number: US-PFIZER INC-2008004987

PATIENT
  Sex: Female
  Weight: 84.4 kg

DRUGS (4)
  1. CHANTIX [Suspect]
     Indication: SMOKING CESSATION THERAPY
  2. METHADONE HCL [Concomitant]
     Indication: FIBROMYALGIA
  3. LORTAB [Concomitant]
     Indication: FIBROMYALGIA
  4. VALIUM [Concomitant]

REACTIONS (7)
  - HOSTILITY [None]
  - INTENTIONAL SELF-INJURY [None]
  - IRRITABILITY [None]
  - PSYCHOMOTOR HYPERACTIVITY [None]
  - SLEEP DISORDER [None]
  - STRESS [None]
  - SUICIDAL BEHAVIOUR [None]
